FAERS Safety Report 12328362 (Version 5)
Quarter: 2016Q3

REPORT INFORMATION
  Report Type: Report from Study
  Country: US (occurrence: US)
  Receive Date: 20160503
  Receipt Date: 20160726
  Transmission Date: 20161109
  Serious: Yes (Death, Other)
  Sender: FDA-Public Use
  Company Number: US-GILEAD-2016-0207118

PATIENT
  Age: 60 Year
  Sex: Female
  Weight: 46 kg

DRUGS (7)
  1. IDELALISIB [Suspect]
     Active Substance: IDELALISIB
     Dosage: 100 MG, BID
     Route: 048
     Dates: start: 20160426, end: 20160613
  2. RITUXIMAB [Concomitant]
     Active Substance: RITUXIMAB
  3. IDELALISIB [Suspect]
     Active Substance: IDELALISIB
     Indication: B-CELL LYMPHOMA
     Dosage: 150 MG, QD
     Route: 048
     Dates: start: 20160419, end: 20160428
  4. ALLOPURINOL. [Concomitant]
     Active Substance: ALLOPURINOL
  5. IDELALISIB [Suspect]
     Active Substance: IDELALISIB
     Indication: CHRONIC LYMPHOCYTIC LEUKAEMIA
     Dosage: 150 MG BID
     Route: 048
     Dates: start: 20160323, end: 20160406
  6. ACYCLOVIR                          /00587301/ [Concomitant]
     Active Substance: ACYCLOVIR
     Dosage: UNK
     Dates: start: 20160118
  7. FOLIC ACID. [Concomitant]
     Active Substance: FOLIC ACID

REACTIONS (17)
  - Contusion [Recovered/Resolved]
  - Off label use [Recovered/Resolved]
  - Cough [Unknown]
  - Lower respiratory tract congestion [Recovered/Resolved]
  - Fatigue [Unknown]
  - Diarrhoea [Recovered/Resolved]
  - Diarrhoea [Unknown]
  - Hyperaesthesia [Recovered/Resolved]
  - Pain [Recovered/Resolved]
  - Dyspnoea [Unknown]
  - Abdominal distension [Recovered/Resolved]
  - Insomnia [Unknown]
  - Pneumonitis [Unknown]
  - Pleural effusion [Unknown]
  - Sinusitis [Unknown]
  - Cardio-respiratory arrest [Fatal]
  - Chest pain [Unknown]

NARRATIVE: CASE EVENT DATE: 20160327
